FAERS Safety Report 7364463-4 (Version None)
Quarter: 2011Q1

REPORT INFORMATION
  Report Type: 
  Country: None (occurrence: None)
  Receive Date: 20110321
  Receipt Date: 20110310
  Transmission Date: 20110831
  Serious: Yes (Death)
  Sender: FDA-Public Use
  Company Number: CA-PFIZER INC-2011043366

PATIENT
  Age: 50 Year
  Sex: Male

DRUGS (9)
  1. AMITRIPTYLINE [Suspect]
  2. ENBREL [Suspect]
     Indication: PSORIASIS
     Dosage: 50 MG, 2 TIMES/WK
     Route: 058
     Dates: start: 20061108
  3. OXYCODONE [Suspect]
  4. TEMAZEPAM [Suspect]
  5. OXAZEPAM [Suspect]
  6. NORTRIPTYLINE [Suspect]
  7. ETHANOL [Suspect]
  8. ALPRAZOLAM [Suspect]
     Dosage: UNK
  9. CITALOPRAM [Suspect]

REACTIONS (1)
  - TOXICITY TO VARIOUS AGENTS [None]
